FAERS Safety Report 9465997 (Version 1)
Quarter: 2013Q3

REPORT INFORMATION
  Report Type: Report from Study
  Country: AU (occurrence: AU)
  Receive Date: 20130820
  Receipt Date: 20130820
  Transmission Date: 20140515
  Serious: Yes (Other)
  Sender: FDA-Public Use
  Company Number: AU-ROCHE-1264271

PATIENT
  Age: 84 Year
  Sex: Female

DRUGS (1)
  1. RANIBIZUMAB [Suspect]
     Indication: AGE-RELATED MACULAR DEGENERATION
     Route: 050
     Dates: start: 201101

REACTIONS (3)
  - Age-related macular degeneration [Not Recovered/Not Resolved]
  - Disease progression [Unknown]
  - Feeling abnormal [Unknown]
